FAERS Safety Report 8300259-4 (Version None)
Quarter: 2012Q2

REPORT INFORMATION
  Report Type: 
  Country: None (occurrence: None)
  Receive Date: 20120417
  Receipt Date: 20120417
  Transmission Date: 20120825
  Serious: Yes (Death)
  Sender: FDA-Public Use
  Company Number: CRC-12-143

PATIENT
  Age: 55 Year
  Sex: Female

DRUGS (2)
  1. OXYCODONE MFR/LABELER: UNKNOWN [Suspect]
  2. MORPHINE [Suspect]

REACTIONS (1)
  - DEATH [None]
